FAERS Safety Report 21700188 (Version 1)
Quarter: 2022Q4

REPORT INFORMATION
  Report Type: Spontaneous
  Country: US (occurrence: US)
  Receive Date: 20221208
  Receipt Date: 20221208
  Transmission Date: 20230113
  Serious: No
  Sender: FDA-Public Use
  Company Number: US-ELI_LILLY_AND_COMPANY-US202212000651

PATIENT
  Sex: Male

DRUGS (4)
  1. TRULICITY [Suspect]
     Active Substance: DULAGLUTIDE
     Indication: Latent autoimmune diabetes in adults
     Dosage: 4.5 MG, UNKNOWN
     Route: 058
     Dates: start: 20221128
  2. HUMALOG [Suspect]
     Active Substance: INSULIN LISPRO
     Indication: Latent autoimmune diabetes in adults
     Dosage: UNK UNK, UNKNOWN
     Route: 058
  3. TRESIBA [Concomitant]
     Active Substance: INSULIN DEGLUDEC
     Indication: Latent autoimmune diabetes in adults
  4. OZEMPIC [Concomitant]
     Active Substance: SEMAGLUTIDE
     Indication: Latent autoimmune diabetes in adults

REACTIONS (3)
  - Blood glucose increased [Recovering/Resolving]
  - Off label use [Unknown]
  - Off label use [Unknown]
